FAERS Safety Report 8809490 (Version 1)
Quarter: 2012Q4

REPORT INFORMATION
  Report Type: 
  Country: AR (occurrence: AR)
  Receive Date: 20120926
  Receipt Date: 20120926
  Transmission Date: 20130627
  Serious: Yes (Other)
  Sender: FDA-Public Use
  Company Number: AR-ROCHE-1130933

PATIENT
  Sex: Female

DRUGS (2)
  1. LUCENTIS [Suspect]
     Indication: MACULOPATHY
     Route: 050
     Dates: start: 2010, end: 2010
  2. LUCENTIS [Suspect]
     Route: 065
     Dates: start: 2012

REACTIONS (2)
  - Blindness unilateral [Unknown]
  - Eye infection [Recovering/Resolving]
